FAERS Safety Report 23377030 (Version 2)
Quarter: 2024Q3

REPORT INFORMATION
  Report Type: Report from Study
  Country: BR (occurrence: BR)
  Receive Date: 20240108
  Receipt Date: 20240821
  Transmission Date: 20241016
  Serious: Yes (Other)
  Sender: EMD SERONO INC
  Company Number: BR-Merck Healthcare KGaA-2023471304

PATIENT
  Sex: Female

DRUGS (4)
  1. MAVENCLAD [Suspect]
     Active Substance: CLADRIBINE
     Indication: Multiple sclerosis
     Dosage: YEAR ONE MONTH ONE THERAPY AT A DAILY DOSE OF 10 MG FROM DAY 1 TO 5
     Route: 048
     Dates: start: 20210815, end: 20210819
  2. MAVENCLAD [Suspect]
     Active Substance: CLADRIBINE
     Dosage: YEAR ONE MONTH TWO THERAPY AT A DAILY DOSE OF 10 MG FROM DAY 1 TO 5
     Route: 048
  3. MAVENCLAD [Suspect]
     Active Substance: CLADRIBINE
     Dosage: YEAR TWO MONTH ONE THERAPY AT A DAILY DOSE OF 10 MG FROM DAY 1 TO 5
     Route: 048
  4. MAVENCLAD [Suspect]
     Active Substance: CLADRIBINE
     Dosage: YEAR TWO MONTH TWO THERAPY AT A DAILY DOSE OF 10 MG FROM DAY 1 TO 5
     Route: 048

REACTIONS (5)
  - Pneumonia [Unknown]
  - Respiratory tract infection [Not Recovered/Not Resolved]
  - Fatigue [Not Recovered/Not Resolved]
  - Infection [Unknown]
  - Lymphocyte count decreased [Not Recovered/Not Resolved]
